FAERS Safety Report 7850663-3 (Version None)
Quarter: 2011Q4

REPORT INFORMATION
  Report Type: 
  Country: None (occurrence: None)
  Receive Date: 20111026
  Receipt Date: 20111018
  Transmission Date: 20120403
  Serious: Yes (Other)
  Sender: FDA-Public Use
  Company Number: US-ASTRAZENECA-2011SE30043

PATIENT
  Age: 63 Year
  Sex: Male

DRUGS (4)
  1. TOPROL-XL [Suspect]
     Route: 048
  2. LIPITOR [Concomitant]
  3. NEXIUM [Suspect]
     Route: 048
  4. PRILOSEC [Suspect]
     Route: 048

REACTIONS (2)
  - CEREBROVASCULAR ACCIDENT [None]
  - TRANSIENT ISCHAEMIC ATTACK [None]
